FAERS Safety Report 6530495-9 (Version None)
Quarter: 2010Q1

REPORT INFORMATION
  Report Type: 
  Country: None (occurrence: None)
  Receive Date: 20100107
  Receipt Date: 20091228
  Transmission Date: 20100710
  Serious: Yes (Other)
  Sender: FDA-Public Use
  Company Number: US-ELI_LILLY_AND_COMPANY-US201001000780

PATIENT
  Sex: Male
  Weight: 28.4 kg

DRUGS (3)
  1. HUMATROPE [Suspect]
     Dosage: UNK, UNKNOWN
     Dates: end: 20060801
  2. GENOTROPIN [Concomitant]
     Indication: GROWTH HORMONE DEFICIENCY
     Dosage: 1.2 MG, DAILY (1/D)
     Dates: start: 20080327
  3. HUMAN GROWTH HORMONE [Concomitant]
     Dosage: UNK, UNKNOWN
     Dates: start: 20020501, end: 20030101

REACTIONS (6)
  - ATTENTION DEFICIT/HYPERACTIVITY DISORDER [None]
  - CSF PRESSURE INCREASED [None]
  - HEADACHE [None]
  - INTRACRANIAL PRESSURE INCREASED [None]
  - MUSCLE SPASTICITY [None]
  - TOE WALKING [None]
